FAERS Safety Report 5918996-5 (Version None)
Quarter: 2008Q4

REPORT INFORMATION
  Report Type: 
  Country: None (occurrence: None)
  Receive Date: 20081014
  Receipt Date: 20081014
  Transmission Date: 20090506
  Serious: No
  Sender: FDA-Public Use
  Company Number: None

PATIENT
  Age: 37 Year
  Sex: Female
  Weight: 56.6996 kg

DRUGS (2)
  1. CLARITHROMYCIN [Suspect]
     Indication: SINUSITIS
     Dosage: 1000 MG ONCE DAILY PO
     Route: 048
     Dates: start: 20081008, end: 20081017
  2. CLARITHROMYCIN [Suspect]
     Indication: UPPER RESPIRATORY TRACT INFECTION
     Dosage: 1000 MG ONCE DAILY PO
     Route: 048
     Dates: start: 20081008, end: 20081017

REACTIONS (5)
  - ABDOMINAL PAIN UPPER [None]
  - COLD SWEAT [None]
  - DIARRHOEA [None]
  - DYSGEUSIA [None]
  - NAUSEA [None]
